FAERS Safety Report 5020992-X (Version None)
Quarter: 2006Q2

REPORT INFORMATION
  Report Type: 
  Country: None (occurrence: None)
  Receive Date: 20060602
  Receipt Date: 20060521
  Transmission Date: 20061013
  Serious: Yes (Other)
  Sender: FDA-Public Use
  Company Number: CHPA2006US05042

PATIENT
  Age: 47 Year
  Sex: Female
  Weight: 149.7 kg

DRUGS (2)
  1. GAS-X CHEWABLE TABLETS CHERRY CREME (NCH) (SIMETHICONE)CHEWABLE TABLET [Suspect]
     Indication: FLATULENCE
     Dosage: 160 MG, PRN; ORAL
     Route: 048
     Dates: start: 20000101
  2. PRILOSEC [Concomitant]

REACTIONS (1)
  - RECTAL HAEMORRHAGE [None]
